FAERS Safety Report 6875433-4 (Version None)
Quarter: 2010Q3

REPORT INFORMATION
  Report Type: 
  Country: None (occurrence: None)
  Receive Date: 20100727
  Receipt Date: 20070531
  Transmission Date: 20110219
  Serious: Yes (Hospitalization, Other)
  Sender: FDA-Public Use
  Company Number: US-PFIZER INC-2006135685

PATIENT
  Sex: Male

DRUGS (3)
  1. CELEBREX [Suspect]
     Indication: PAIN
     Dates: start: 20010228, end: 20010318
  2. BEXTRA [Suspect]
     Indication: PAIN MANAGEMENT
     Dates: start: 20030811, end: 20030825
  3. VIOXX [Suspect]
     Dates: start: 20030801

REACTIONS (1)
  - MYOCARDIAL INFARCTION [None]
